FAERS Safety Report 22050936 (Version 2)
Quarter: 2023Q1

REPORT INFORMATION
  Report Type: Spontaneous
  Country: BY (occurrence: BY)
  Receive Date: 20230301
  Receipt Date: 20230308
  Transmission Date: 20230418
  Serious: Yes (Other)
  Sender: FDA-Public Use
  Company Number: BY-PFIZER INC-PV202300036760

PATIENT

DRUGS (6)
  1. AVIBACTAM SODIUM\CEFTAZIDIME [Suspect]
     Active Substance: AVIBACTAM SODIUM\CEFTAZIDIME
     Indication: Sepsis
     Dosage: UNK
  2. AVIBACTAM SODIUM\CEFTAZIDIME [Suspect]
     Active Substance: AVIBACTAM SODIUM\CEFTAZIDIME
     Indication: Acinetobacter bacteraemia
  3. AVIBACTAM SODIUM\CEFTAZIDIME [Suspect]
     Active Substance: AVIBACTAM SODIUM\CEFTAZIDIME
     Indication: Pneumonia klebsiella
  4. COLISTIN [Concomitant]
     Active Substance: COLISTIN
     Indication: Sepsis
     Dosage: UNK
  5. COLISTIN [Concomitant]
     Active Substance: COLISTIN
     Indication: Acinetobacter bacteraemia
  6. COLISTIN [Concomitant]
     Active Substance: COLISTIN
     Indication: Pneumonia klebsiella

REACTIONS (3)
  - Lung consolidation [Unknown]
  - Pneumonia [Unknown]
  - Drug ineffective [Unknown]
